FAERS Safety Report 7111329-0 (Version None)
Quarter: 2010Q4

REPORT INFORMATION
  Report Type: 
  Country: None (occurrence: None)
  Receive Date: 20101118
  Receipt Date: 20091208
  Transmission Date: 20110411
  Serious: No
  Sender: FDA-Public Use
  Company Number: US-TEVA-217590USA

PATIENT
  Sex: Female

DRUGS (2)
  1. ALBUTEROL SULFATE AUTOHALER [Suspect]
     Indication: DYSPNOEA
     Dosage: 1 PUFF EVERY 4-6 HOURS
     Route: 055
     Dates: start: 20091207
  2. ANTIBIOTICS [Concomitant]

REACTIONS (1)
  - HEADACHE [None]
